FAERS Safety Report 4646716-3 (Version None)
Quarter: 2005Q2

REPORT INFORMATION
  Report Type: 
  Country: None (occurrence: None)
  Receive Date: 20050427
  Receipt Date: 20050426
  Transmission Date: 20051028
  Serious: Yes (Other)
  Sender: FDA-Public Use
  Company Number: US-GLAXOSMITHKLINE-A0555813A

PATIENT
  Age: 70 Year
  Sex: Female

DRUGS (13)
  1. AVANDIA [Suspect]
     Dosage: 4MG PER DAY
     Route: 048
     Dates: start: 20050401
  2. LEVOXYL [Concomitant]
  3. ZOCOR [Concomitant]
  4. METOPROLOL TARTRATE [Concomitant]
  5. CITRACAL [Concomitant]
  6. MEGESTROL [Concomitant]
  7. PREVACID [Concomitant]
  8. CAPTOPRIL [Concomitant]
  9. VITAMIN B-12 [Concomitant]
  10. GEMFIBROZIL [Concomitant]
  11. HUMULIN R [Concomitant]
  12. HUMULIN N [Concomitant]
  13. MULTI-VITAMIN [Concomitant]

REACTIONS (7)
  - DIZZINESS [None]
  - FATIGUE [None]
  - HYPOAESTHESIA [None]
  - HYPOGLYCAEMIA [None]
  - OEDEMA PERIPHERAL [None]
  - PAIN [None]
  - PARAESTHESIA [None]
